FAERS Safety Report 16730075 (Version 1)
Quarter: 2019Q3

REPORT INFORMATION
  Report Type: Spontaneous
  Country: FR (occurrence: FR)
  Receive Date: 20190822
  Receipt Date: 20190822
  Transmission Date: 20191005
  Serious: No
  Sender: FDA-Public Use
  Company Number: FR-PACIRA-201600004

PATIENT
  Age: 33 Year
  Sex: Male

DRUGS (1)
  1. DEPOCYT [Suspect]
     Active Substance: CYTARABINE
     Indication: METASTASES TO MENINGES
     Dosage: UNK UNK, UNK, FREQUENCY : UNK
     Route: 037
     Dates: start: 20160205

REACTIONS (1)
  - Sciatica [Recovering/Resolving]
